FAERS Safety Report 5818565-1 (Version None)
Quarter: 2008Q3

REPORT INFORMATION
  Report Type: 
  Country: None (occurrence: None)
  Receive Date: 20080718
  Receipt Date: 20080708
  Transmission Date: 20090109
  Serious: Yes (Hospitalization, Other)
  Sender: FDA-Public Use
  Company Number: 239167K07USA

PATIENT
  Age: 49 Year
  Sex: Female
  Weight: 63.5036 kg

DRUGS (4)
  1. REBIF [Suspect]
     Indication: MULTIPLE SCLEROSIS
     Dosage: 44 MCG, 3 IN 1 WEEKS, SUBCUTANEOUS
     Route: 058
     Dates: start: 20070829
  2. BACLOFEN [Concomitant]
  3. COUMADIN [Concomitant]
  4. TYLENOL ES(PARACETAMOL) [Concomitant]

REACTIONS (4)
  - PAIN IN EXTREMITY [None]
  - POOR PERIPHERAL CIRCULATION [None]
  - PYREXIA [None]
  - SKIN ULCER [None]
